FAERS Safety Report 8261509-6 (Version None)
Quarter: 2012Q2

REPORT INFORMATION
  Report Type: 
  Country: None (occurrence: None)
  Receive Date: 20120405
  Receipt Date: 20120403
  Transmission Date: 20120825
  Serious: Yes (Death)
  Sender: FDA-Public Use
  Company Number: US-ASTELLAS-2011US006286

PATIENT
  Sex: Female

DRUGS (1)
  1. ERLOTINIB HYDROCHLORIDE [Suspect]
     Indication: GALLBLADDER CANCER
     Dosage: 150 MG, UID/QD
     Route: 048
     Dates: start: 20110920

REACTIONS (4)
  - RASH [None]
  - OFF LABEL USE [None]
  - NEOPLASM MALIGNANT [None]
  - ORAL CANDIDIASIS [None]
